FAERS Safety Report 4977841-5 (Version None)
Quarter: 2006Q1

REPORT INFORMATION
  Report Type: 
  Country: None (occurrence: None)
  Receive Date: 20060215
  Receipt Date: 20050125
  Transmission Date: 20060701
  Serious: Yes (Other)
  Sender: FDA-Public Use
  Company Number: MC200500089

PATIENT
  Age: 80 Year
  Sex: Female
  Weight: 68 kg

DRUGS (3)
  1. ANGIOMAX [Suspect]
     Dosage: 0.75 MG/KG, BOLUS, IV BOLUS
     Route: 040
  2. ENOXAPARIN SODIUM [Suspect]
     Dosage: 10 HOURS PRIOR TO PCI
  3. PLAVIX [Suspect]
     Dosage: GIVEN POST PCI

REACTIONS (1)
  - RETROPERITONEAL HAEMORRHAGE [None]
